FAERS Safety Report 9211017 (Version 1)
Quarter: 2013Q2

REPORT INFORMATION
  Report Type: Spontaneous
  Country: SA (occurrence: SA)
  Receive Date: 20130404
  Receipt Date: 20130404
  Transmission Date: 20140414
  Serious: Yes (Hospitalization)
  Sender: FDA-Public Use
  Company Number: SA-BAYER-2013-041822

PATIENT
  Age: 59 Year
  Sex: Female
  Weight: 74 kg

DRUGS (10)
  1. ACETYLSALICYLIC ACID({=100 MG) [Suspect]
  2. CLOPIDOGREL [Concomitant]
  3. CAPTOPRIL [Concomitant]
  4. BISOPROLOL [Concomitant]
  5. HEPARIN [Concomitant]
     Route: 042
  6. NITROGLYCERIN [Concomitant]
  7. PROPOFOL [Concomitant]
     Indication: ANAESTHESIA
     Dosage: 1 ?G/ML, UNK
  8. SUFENTANIL [Concomitant]
     Indication: ANAESTHESIA
     Dosage: 0.1 ?G/ML, UNK
  9. CISATRACURIUM [Concomitant]
  10. EPINEPHRINE [Concomitant]
     Dosage: 7 MCG/MIN
     Route: 042

REACTIONS (2)
  - Mediastinal haemorrhage [None]
  - Ischaemic cerebral infarction [None]
